FAERS Safety Report 9339358 (Version 1)
Quarter: 2013Q2

REPORT INFORMATION
  Report Type: Spontaneous
  Country: BE (occurrence: BE)
  Receive Date: 20130610
  Receipt Date: 20130610
  Transmission Date: 20140414
  Serious: Yes (Death, Hospitalization, Other)
  Sender: FDA-Public Use
  Company Number: BE-NOVOPROD-374897

PATIENT
  Age: 51 Year
  Sex: Male
  Weight: 55 kg

DRUGS (5)
  1. LEVEMIR [Suspect]
     Indication: PRODUCT USED FOR UNKNOWN INDICATION
     Dosage: UNKNOWN
     Route: 065
  2. LEVEMIR [Suspect]
     Dosage: 2 U, QD
     Route: 065
  3. NOVORAPID [Suspect]
     Indication: PRODUCT USED FOR UNKNOWN INDICATION
     Dosage: UNKNOWN
     Route: 065
  4. NOVORAPID [Suspect]
     Dosage: UNK
     Route: 065
  5. CREON [Concomitant]
     Dosage: UNK
     Route: 065

REACTIONS (8)
  - Cardio-respiratory arrest [Fatal]
  - Myelodysplastic syndrome [Unknown]
  - Hypoglycaemia [Unknown]
  - Hypoglycaemic coma [Unknown]
  - Diabetes mellitus inadequate control [Unknown]
  - Weight decreased [Unknown]
  - Hypotension [Unknown]
  - Liver function test abnormal [Unknown]
